FAERS Safety Report 4323629-8 (Version None)
Quarter: 2004Q1

REPORT INFORMATION
  Report Type: 
  Country: None (occurrence: None)
  Receive Date: 20040326
  Receipt Date: 20040316
  Transmission Date: 20041129
  Serious: Yes (Other)
  Sender: FDA-Public Use
  Company Number: PHRM2004DZ01276

PATIENT
  Age: 41 Year
  Sex: Male

DRUGS (1)
  1. LESCOL [Suspect]
     Route: 048

REACTIONS (2)
  - HYPOTHYROIDISM [None]
  - MYASTHENIC SYNDROME [None]
